FAERS Safety Report 16742524 (Version 2)
Quarter: 2019Q3

REPORT INFORMATION
  Report Type: Spontaneous
  Country: CO (occurrence: CO)
  Receive Date: 20190826
  Receipt Date: 20190926
  Transmission Date: 20191005
  Serious: Yes (Hospitalization, Other)
  Sender: FDA-Public Use
  Company Number: PHHY2019CO189174

PATIENT
  Sex: Male

DRUGS (5)
  1. ALLOPURINOL. [Concomitant]
     Active Substance: ALLOPURINOL
     Indication: TENSION
     Dosage: 100 MG, UNK
     Route: 065
  2. CALCITRIOL. [Concomitant]
     Active Substance: CALCITRIOL
     Indication: PRODUCT USED FOR UNKNOWN INDICATION
     Dosage: UNK
     Route: 065
  3. EXFORGE HCT [Suspect]
     Active Substance: AMLODIPINE BESYLATE\HYDROCHLOROTHIAZIDE\VALSARTAN
     Indication: HYPERTENSIVE CRISIS
     Dosage: 5 MG, UNK
     Route: 065
     Dates: start: 20190807, end: 20190815
  4. EXFORGE HCT [Suspect]
     Active Substance: AMLODIPINE BESYLATE\HYDROCHLOROTHIAZIDE\VALSARTAN
     Dosage: 160 MG, UNK
     Route: 065
     Dates: start: 20190807, end: 20190815
  5. EXFORGE HCT [Suspect]
     Active Substance: AMLODIPINE BESYLATE\HYDROCHLOROTHIAZIDE\VALSARTAN
     Dosage: 12.5 MG, UNK
     Route: 065
     Dates: start: 20190807, end: 20190815

REACTIONS (9)
  - Urinary retention [Unknown]
  - Chills [Recovered/Resolved]
  - Product use complaint [Recovered/Resolved]
  - Asphyxia [Unknown]
  - Orthostatic hypotension [Unknown]
  - Feeling hot [Unknown]
  - Blood pressure increased [Recovered/Resolved]
  - Faeces soft [Unknown]
  - Anxiety [Recovered/Resolved]

NARRATIVE: CASE EVENT DATE: 20190807
